FAERS Safety Report 6073190-5 (Version None)
Quarter: 2009Q1

REPORT INFORMATION
  Report Type: 
  Country: None (occurrence: None)
  Receive Date: 20090206
  Receipt Date: 20090128
  Transmission Date: 20090719
  Serious: Yes (Hospitalization)
  Sender: FDA-Public Use
  Company Number: THQ2009A00454

PATIENT
  Age: 84 Year
  Sex: Female

DRUGS (4)
  1. LANSOPRAZOLE [Suspect]
     Dosage: 30 MG (1 D) PER ORAL,
     Route: 048
     Dates: end: 20081217
  2. HAVLANE (LOPRAZOLAM MESILATE) (TABLETS) [Suspect]
     Dosage: 1 MG (1 D) PER ORAL, FEW YEARS
     Route: 048
     Dates: end: 20081217
  3. OXAZEPAM [Suspect]
     Indication: ANXIETY
     Dosage: 150 MG (1 D), FEW YEARS
     Route: 048
     Dates: end: 20081217
  4. ATARAX [Suspect]
     Indication: ANXIETY
     Dosage: 25 MG (1 D), FEW YEARS
     Route: 048
     Dates: end: 20081217

REACTIONS (6)
  - CONFUSIONAL STATE [None]
  - FALL [None]
  - HYPONATRAEMIA [None]
  - MALNUTRITION [None]
  - OVERDOSE [None]
  - WEIGHT DECREASED [None]
